FAERS Safety Report 23038391 (Version 1)
Quarter: 2023Q4

REPORT INFORMATION
  Report Type: Other
  Country: None (occurrence: US)
  Receive Date: 20231006
  Receipt Date: 20231006
  Transmission Date: 20240109
  Serious: Yes (Hospitalization)
  Sender: FDA-Public Use
  Company Number: US-XGen Pharmaceuticals DJB, Inc.-2146780

PATIENT
  Sex: Male

DRUGS (1)
  1. POLYMYXIN B [Suspect]
     Active Substance: POLYMYXIN B
     Route: 042

REACTIONS (1)
  - Skin hyperpigmentation [Recovered/Resolved]
